FAERS Safety Report 5875515-X (Version None)
Quarter: 2008Q3

REPORT INFORMATION
  Report Type: 
  Country: None (occurrence: None)
  Receive Date: 20080909
  Receipt Date: 20080905
  Transmission Date: 20090109
  Serious: Yes (Other)
  Sender: FDA-Public Use
  Company Number: US-ABBOTT-08P-163-0474450-00

PATIENT
  Sex: Male
  Weight: 102.15 kg

DRUGS (6)
  1. DEPAKOTE [Suspect]
     Indication: BIPOLAR DISORDER
     Route: 048
  2. DEPAKOTE [Suspect]
     Route: 048
     Dates: start: 20000101, end: 20020101
  3. DEPAKOTE [Suspect]
     Route: 048
     Dates: start: 20020101
  4. ESCITALOPRAM OXALATE [Concomitant]
     Indication: DEPRESSION
     Route: 048
  5. MORNIFLUMATE [Concomitant]
     Indication: URINARY TRACT DISORDER
     Route: 048
  6. LOMIARAXET [Concomitant]
     Indication: MEMORY IMPAIRMENT
     Route: 048

REACTIONS (4)
  - DRUG INEFFECTIVE [None]
  - PROSTATE CANCER [None]
  - TREMOR [None]
  - WEIGHT INCREASED [None]
